FAERS Safety Report 6453095-8 (Version None)
Quarter: 2009Q4

REPORT INFORMATION
  Report Type: 
  Country: None (occurrence: None)
  Receive Date: 20091117
  Receipt Date: 20091106
  Transmission Date: 20100525
  Serious: Yes (Life-Threatening)
  Sender: FDA-Public Use
  Company Number: 2009-04564

PATIENT
  Age: 65 Year
  Sex: Female
  Weight: 66 kg

DRUGS (3)
  1. VELCADE [Suspect]
     Indication: MULTIPLE MYELOMA
     Dates: start: 20090526, end: 20090820
  2. DEXAMETHASONE TAB [Suspect]
     Indication: MULTIPLE MYELOMA
     Dates: start: 20090526, end: 20090820
  3. MELPHALAN HYDROCHLORIDE [Suspect]
     Indication: MULTIPLE MYELOMA
     Dosage: 330 MCG, INTRAVENOUS
     Route: 042
     Dates: start: 20091021, end: 20091021

REACTIONS (2)
  - FEBRILE NEUTROPENIA [None]
  - STEM CELL TRANSPLANT [None]
